FAERS Safety Report 10046861 (Version 1)
Quarter: 2014Q1

REPORT INFORMATION
  Report Type: Spontaneous
  Country: CA (occurrence: CA)
  Receive Date: 20140331
  Receipt Date: 20140331
  Transmission Date: 20141002
  Serious: Yes (Hospitalization)
  Sender: FDA-Public Use
  Company Number: CA-AMGEN-CANSP2014021545

PATIENT
  Age: 48 Year
  Sex: Female

DRUGS (4)
  1. ENBREL [Suspect]
     Indication: ANKYLOSING SPONDYLITIS
     Dosage: 50 MG, UNK
     Route: 065
     Dates: start: 20131011
  2. METHOTREXATE [Concomitant]
     Dosage: UNK
  3. TRAZODONE [Concomitant]
     Dosage: 50 MG, QHS
  4. DEXILANT [Concomitant]
     Dosage: UNK

REACTIONS (2)
  - Hysterectomy [Recovered/Resolved]
  - Incision site infection [Recovered/Resolved]
